FAERS Safety Report 5307148-8 (Version None)
Quarter: 2007Q2

REPORT INFORMATION
  Report Type: 
  Country: None (occurrence: None)
  Receive Date: 20070420
  Receipt Date: 20070420
  Transmission Date: 20071010
  Serious: No
  Sender: FDA-Public Use
  Company Number: None

PATIENT
  Sex: Female
  Weight: 61.2356 kg

DRUGS (2)
  1. ZELNORM [Suspect]
     Indication: CONSTIPATION
     Dosage: ONE TABLET 2 TIMES A DAY PO
     Route: 048
     Dates: start: 20040403, end: 20050403
  2. ZELNORM [Suspect]
     Indication: CONSTIPATION
     Dosage: ONE TABLET 2 TIMES A DAY PO
     Route: 048
     Dates: start: 20060806, end: 20070310

REACTIONS (3)
  - ABDOMINAL DISCOMFORT [None]
  - ABDOMINAL DISTENSION [None]
  - CARDIAC FLUTTER [None]
